FAERS Safety Report 5354130-0 (Version None)
Quarter: 2007Q2

REPORT INFORMATION
  Report Type: 
  Country: None (occurrence: None)
  Receive Date: 20070612
  Receipt Date: 20070608
  Transmission Date: 20071010
  Serious: Yes (Death)
  Sender: FDA-Public Use
  Company Number: GB-ASTRAZENECA-2007GB01215

PATIENT
  Age: 38 Year
  Sex: Male
  Weight: 100 kg

DRUGS (7)
  1. QUETIAPINE [Suspect]
     Indication: SCHIZOPHRENIA
     Route: 048
     Dates: end: 20070519
  2. QUETIAPINE [Suspect]
     Route: 048
     Dates: start: 20070520, end: 20070526
  3. RISPERIDONE [Suspect]
     Indication: SCHIZOPHRENIA
     Route: 048
     Dates: start: 20070527, end: 20070530
  4. AMOXICILLIN [Concomitant]
     Indication: TONSILLITIS
     Route: 048
     Dates: start: 20070528, end: 20070529
  5. ATENOLOL [Concomitant]
     Route: 048
     Dates: end: 20070529
  6. DICLOFENAC [Concomitant]
     Route: 048
     Dates: start: 20070528, end: 20070529
  7. FLUOXETINE [Concomitant]
     Route: 048
     Dates: end: 20070529

REACTIONS (2)
  - CARDIAC ARREST [None]
  - NEUROLEPTIC MALIGNANT SYNDROME [None]
